FAERS Safety Report 12689102 (Version 2)
Quarter: 2017Q4

REPORT INFORMATION
  Report Type: Spontaneous
  Country: US (occurrence: US)
  Receive Date: 20160826
  Receipt Date: 20171004
  Transmission Date: 20180320
  Serious: Yes (Life-Threatening, Hospitalization, Other)
  Sender: FDA-Public Use
  Company Number: US-WEST-WARD PHARMACEUTICALS CORP.-US-H14001-16-01615

PATIENT
  Age: 19 Year
  Sex: Male
  Weight: 62 kg

DRUGS (1)
  1. LIDOCAINE. [Suspect]
     Active Substance: LIDOCAINE
     Indication: LOCAL ANAESTHESIA

REACTIONS (8)
  - Sinus bradycardia [Recovered/Resolved]
  - Nausea [Unknown]
  - Toxicity to various agents [Unknown]
  - Generalised tonic-clonic seizure [Recovered/Resolved]
  - Vomiting [Unknown]
  - Fatigue [Recovered/Resolved]
  - Hypotension [Recovered/Resolved]
  - Somnolence [Recovered/Resolved]
